FAERS Safety Report 23129169 (Version 1)
Quarter: 2023Q4

REPORT INFORMATION
  Report Type: Spontaneous
  Country: DE (occurrence: DE)
  Receive Date: 20231031
  Receipt Date: 20231031
  Transmission Date: 20240109
  Serious: Yes (Hospitalization, Other)
  Sender: FDA-Public Use
  Company Number: DE-BAYER-2023A151265

PATIENT
  Age: 36 Year
  Sex: Female

DRUGS (4)
  1. KYLEENA [Suspect]
     Active Substance: LEVONORGESTREL
     Indication: Contraception
     Dosage: 17.5?G/DAY
     Route: 015
     Dates: start: 202202, end: 20231020
  2. ENOXAPARIN SODIUM [Concomitant]
     Active Substance: ENOXAPARIN SODIUM
     Indication: Cerebrovascular accident
  3. CORTISONE [Concomitant]
     Active Substance: CORTISONE
     Indication: Cerebrovascular accident
     Dosage: 20 MG , DOSE DESCENDING UNTIL 5-DEC
  4. HYDROXYCHLOROQUINE [Concomitant]
     Active Substance: HYDROXYCHLOROQUINE
     Indication: Cerebrovascular accident
     Dosage: 40 MG

REACTIONS (4)
  - Cerebrovascular accident [None]
  - Sensory loss [None]
  - Off label use [None]
  - Device use issue [None]
